FAERS Safety Report 14046471 (Version 1)
Quarter: 2017Q4

REPORT INFORMATION
  Report Type: Spontaneous
  Country: US (occurrence: None)
  Receive Date: 20171005
  Receipt Date: 20171005
  Transmission Date: 20180321
  Serious: Yes (Death, Hospitalization)
  Sender: FDA-Public Use
  Company Number: None

PATIENT
  Age: 14 Year
  Sex: Female
  Weight: 55 kg

DRUGS (5)
  1. DAUNORUBICIN [Suspect]
     Active Substance: DAUNORUBICIN
     Dates: end: 20170323
  2. ONCASPAR [Suspect]
     Active Substance: PEGASPARGASE
     Dates: end: 20170326
  3. PREDNISONE. [Suspect]
     Active Substance: PREDNISONE
     Dates: end: 20170328
  4. VINCRISTINE SULFATE. [Concomitant]
     Active Substance: VINCRISTINE SULFATE
     Dates: end: 20170323
  5. CYTARABINE. [Suspect]
     Active Substance: CYTARABINE
     Dates: end: 20170323

REACTIONS (15)
  - Respiratory distress [None]
  - Hypotension [None]
  - Chest X-ray abnormal [None]
  - Bradycardia [None]
  - Dizziness [None]
  - Headache [None]
  - Bundle branch block right [None]
  - Catheter site haemorrhage [None]
  - Blindness transient [None]
  - Dyspnoea [None]
  - Neutropenia [None]
  - Cardiac failure [None]
  - Syncope [None]
  - Abdominal pain [None]
  - Epistaxis [None]

NARRATIVE: CASE EVENT DATE: 20170425
